FAERS Safety Report 8225319 (Version 2)
Quarter: 2014Q1

REPORT INFORMATION
  Report Type: Spontaneous
  Country: US (occurrence: None)
  Receive Date: 20110923
  Receipt Date: 20131204
  Transmission Date: 20141002
  Serious: Yes (Other)
  Sender: FDA-Public Use
  Company Number: 783075

PATIENT
  Age: 50 Year
  Sex: Male
  Weight: 81.4 kg

DRUGS (3)
  1. NIPENT [Suspect]
     Indication: CHRONIC LYMPHOCYTIC LEUKAEMIA
     Dosage: 4 MG/M2 DAY 1 ; 8.36 MG
     Dates: start: 20080211
  2. CYCLOPHOSPHAMIDE [Suspect]
     Indication: CHRONIC LYMPHOCYTIC LEUKAEMIA
     Dosage: 600 MG/M2 DAY 1 ; 1254 NG
     Dates: start: 20080211
  3. RITUXIMAB [Concomitant]
     Indication: CHRONIC LYMPHOCYTIC LEUKAEMIA
     Dates: start: 20080211, end: 20080211

REACTIONS (1)
  - Neutropenia [None]
